FAERS Safety Report 4545834-8 (Version None)
Quarter: 2005Q1

REPORT INFORMATION
  Report Type: 
  Country: None (occurrence: None)
  Receive Date: 20050103
  Receipt Date: 20041221
  Transmission Date: 20050727
  Serious: Yes (Other)
  Sender: FDA-Public Use
  Company Number: 2004077846

PATIENT
  Age: 43 Year
  Sex: Male
  Weight: 92.0802 kg

DRUGS (7)
  1. NEURONTIN [Suspect]
     Indication: CONVULSION
     Dosage: SEE IMAGE
     Route: 048
     Dates: start: 20030708
  2. NEURONTIN [Suspect]
     Indication: CONVULSION
     Dosage: SEE IMAGE
     Route: 048
     Dates: start: 20030708
  3. BEXTRA [Suspect]
     Indication: NECK PAIN
     Dates: start: 20041008
  4. CYCLOBENZAPRINE (CYCLOBENZAPRINE) [Concomitant]
     Indication: ILL-DEFINED DISORDER
     Dates: end: 20040901
  5. LEVETIRACETAM [Concomitant]
  6. ALPRAZOLAM [Concomitant]
  7. DEXTROPROPOXYPYPHENE (DEXTROPROPOXYPHENE) [Concomitant]

REACTIONS (5)
  - BLOOD PRESSURE INCREASED [None]
  - BLOOD SODIUM DECREASED [None]
  - CONVULSION [None]
  - DRUG INEFFECTIVE [None]
  - TREATMENT NONCOMPLIANCE [None]
